FAERS Safety Report 5279978-2 (Version None)
Quarter: 2007Q1

REPORT INFORMATION
  Report Type: 
  Country: None (occurrence: None)
  Receive Date: 20070327
  Receipt Date: 20070327
  Transmission Date: 20070707
  Serious: No
  Sender: FDA-Public Use
  Company Number: None

PATIENT
  Age: 53 Year
  Sex: Male
  Weight: 81.6475 kg

DRUGS (1)
  1. GADOLINIUM [Suspect]
     Indication: VASCULAR IMAGING
     Dates: start: 20061216, end: 20061216

REACTIONS (2)
  - MOBILITY DECREASED [None]
  - NEPHROGENIC FIBROSING DERMOPATHY [None]
